FAERS Safety Report 6230630-6 (Version None)
Quarter: 2009Q2

REPORT INFORMATION
  Report Type: 
  Country: None (occurrence: None)
  Receive Date: 20090611
  Receipt Date: 20090526
  Transmission Date: 20091009
  Serious: Yes (Other)
  Sender: FDA-Public Use
  Company Number: 2009204840

PATIENT
  Age: 65 Year
  Sex: Female
  Weight: 82 kg

DRUGS (4)
  1. FRAGMIN [Suspect]
     Indication: THROMBOSIS PROPHYLAXIS
     Dosage: 16400 IU, SYRINGE FILLED BY PATIENT, SUBCUTANEOUS, 15000 IU, PRE-FILLED SYRINGES, SUBCUTANEOUS
     Route: 058
     Dates: start: 20090330, end: 20090404
  2. KEFLEX [Suspect]
     Indication: CELLULITIS
     Dosage: 500 MG, 4X/DAY, ORAL
     Route: 048
     Dates: start: 20090412, end: 20090414
  3. FERROUS SULFATE TAB [Concomitant]
  4. COUMADIN [Concomitant]

REACTIONS (3)
  - CELLULITIS [None]
  - INJECTION SITE ERYTHEMA [None]
  - URTICARIA [None]
